FAERS Safety Report 25416181 (Version 1)
Quarter: 2025Q2

REPORT INFORMATION
  Report Type: Spontaneous
  Country: JP (occurrence: JP)
  Receive Date: 20250610
  Receipt Date: 20250610
  Transmission Date: 20250717
  Serious: Yes (Hospitalization)
  Sender: CHEPLAPHARM
  Company Number: JP-CP_KK-2025JP003860

PATIENT
  Age: 2 Decade
  Sex: Female

DRUGS (3)
  1. OLANZAPINE [Suspect]
     Active Substance: OLANZAPINE
  2. ARIPIPRAZOLE [Suspect]
     Active Substance: ARIPIPRAZOLE
  3. LORAZEPAM [Suspect]
     Active Substance: LORAZEPAM

REACTIONS (7)
  - Pneumonia aspiration [Unknown]
  - Toxicity to various agents [Unknown]
  - Hepatosplenomegaly [Unknown]
  - Pleural effusion [Unknown]
  - Liver disorder [Unknown]
  - Drug abuse [Unknown]
  - Overdose [Unknown]
